FAERS Safety Report 7307499-1 (Version None)
Quarter: 2011Q1

REPORT INFORMATION
  Report Type: 
  Country: None (occurrence: None)
  Receive Date: 20110211
  Receipt Date: 20101213
  Transmission Date: 20110831
  Serious: No
  Sender: FDA-Public Use
  Company Number: USA/USA/10/0016911

PATIENT
  Age: 55 Year
  Sex: Male

DRUGS (6)
  1. SIMVASTATIN [Concomitant]
  2. ATENOLOL [Concomitant]
  3. NORVASC [Concomitant]
  4. ONGLYZA (SAXAGLIPTIN) [Concomitant]
  5. LANSOPRAZOLE DELAYED-RELEASE CAPSULES (LANSOPRAZOLE) [Suspect]
     Indication: DYSPEPSIA
     Dosage: 30 MG, 1 IN 1 D, ORAL
     Route: 048
     Dates: start: 20101201, end: 20101218
  6. ASPIRIN [Concomitant]

REACTIONS (2)
  - DRUG INEFFECTIVE [None]
  - PRODUCT SUBSTITUTION ISSUE [None]
